FAERS Safety Report 8889845 (Version 1)
Quarter: 2012Q4

REPORT INFORMATION
  Report Type: 
  Country: BR (occurrence: BR)
  Receive Date: 20121107
  Receipt Date: 20121107
  Transmission Date: 20130627
  Serious: Yes (Other)
  Sender: FDA-Public Use
  Company Number: BR-ELI_LILLY_AND_COMPANY-BR201210009551

PATIENT
  Age: 72 Year
  Sex: Female

DRUGS (4)
  1. HUMULIN NPH [Suspect]
     Indication: DIABETES MELLITUS
     Dosage: 28 IU, each morning
     Route: 058
     Dates: start: 20120929, end: 20121013
  2. HUMULIN NPH [Suspect]
     Dosage: 12 IU, other
     Route: 058
     Dates: start: 20120929, end: 20121013
  3. HUMULIN NPH [Suspect]
     Dosage: 4 IU, each evening
     Route: 058
     Dates: start: 20120929, end: 20121013
  4. VITAMINS [Concomitant]
     Dosage: UNK, unknown
     Route: 065

REACTIONS (2)
  - Blood glucose increased [Recovered/Resolved]
  - Drug ineffective [Unknown]
